FAERS Safety Report 16938367 (Version 1)
Quarter: 2019Q4

REPORT INFORMATION
  Report Type: Report from Study
  Country: US (occurrence: US)
  Receive Date: 20191019
  Receipt Date: 20191019
  Transmission Date: 20200122
  Serious: Yes (Death, Other)
  Sender: FDA-Public Use
  Company Number: NVSC2019US005180

PATIENT
  Age: 13 Year
  Sex: Female

DRUGS (3)
  1. CYCLOPHOSPHAMIDE. [Concomitant]
     Active Substance: CYCLOPHOSPHAMIDE
     Indication: CHEMOTHERAPY
     Route: 065
  2. FLUDARABINE [Concomitant]
     Active Substance: FLUDARABINE PHOSPHATE
     Indication: CHEMOTHERAPY
     Route: 065
  3. KYMRIAH [Suspect]
     Active Substance: TISAGENLECLEUCEL
     Indication: B-CELL TYPE ACUTE LEUKAEMIA
     Dosage: UNK, ONCE/SINGLE
     Route: 041
     Dates: start: 2019

REACTIONS (17)
  - B-cell type acute leukaemia [Fatal]
  - Minimal residual disease [Unknown]
  - Neurotoxicity [None]
  - Hemiparesis [Unknown]
  - Haemoglobin decreased [Unknown]
  - Seizure [Unknown]
  - Hypoxia [Unknown]
  - Paraparesis [Unknown]
  - Malignant neoplasm progression [Fatal]
  - Lymphocyte count decreased [Unknown]
  - Platelet count decreased [Unknown]
  - Depressed level of consciousness [Unknown]
  - Aphasia [Unknown]
  - Cytokine release syndrome [Recovered/Resolved]
  - Pyrexia [Unknown]
  - Haematocrit decreased [Unknown]
  - Motor dysfunction [Unknown]
